FAERS Safety Report 6124186-6 (Version None)
Quarter: 2009Q1

REPORT INFORMATION
  Report Type: 
  Country: None (occurrence: None)
  Receive Date: 20090319
  Receipt Date: 20090317
  Transmission Date: 20090719
  Serious: Yes (Other)
  Sender: FDA-Public Use
  Company Number: US-JNJFOC-20090102759

PATIENT
  Sex: Male
  Weight: 52.62 kg

DRUGS (4)
  1. CONCERTA [Suspect]
     Route: 048
  2. CONCERTA [Suspect]
     Indication: ATTENTION DEFICIT/HYPERACTIVITY DISORDER
     Route: 048
  3. SINGULAIR [Concomitant]
     Route: 065
  4. SEROQUEL [Concomitant]
     Route: 065

REACTIONS (2)
  - BURNING SENSATION [None]
  - DYSTONIA [None]
